FAERS Safety Report 8419861-4 (Version None)
Quarter: 2012Q2

REPORT INFORMATION
  Report Type: 
  Country: None (occurrence: None)
  Receive Date: 20120607
  Receipt Date: 20120530
  Transmission Date: 20120825
  Serious: Yes (Hospitalization)
  Sender: FDA-Public Use
  Company Number: US-ABBOTT-12P-163-0936849-00

PATIENT
  Sex: Female
  Weight: 67.192 kg

DRUGS (7)
  1. FOLIC ACID [Concomitant]
     Indication: RHEUMATOID ARTHRITIS
  2. KEPPRA [Concomitant]
     Indication: CONVULSION
  3. PREDNISONE [Concomitant]
     Indication: RHEUMATOID ARTHRITIS
  4. NAPROXEN (ALEVE) [Concomitant]
     Indication: PRODUCT USED FOR UNKNOWN INDICATION
  5. HUMIRA [Suspect]
     Indication: RHEUMATOID ARTHRITIS
     Dates: start: 20120517
  6. METHOTREXATE [Concomitant]
     Indication: RHEUMATOID ARTHRITIS
  7. ZEBUTAL [Concomitant]
     Indication: MIGRAINE

REACTIONS (13)
  - DIZZINESS [None]
  - THERAPEUTIC RESPONSE UNEXPECTED [None]
  - ARTHROPOD BITE [None]
  - FEELING HOT [None]
  - NODULE [None]
  - ERYTHEMA [None]
  - HYPERAESTHESIA [None]
  - OEDEMA PERIPHERAL [None]
  - SLEEP DISORDER [None]
  - ARTHRITIS INFECTIVE [None]
  - TENDERNESS [None]
  - HEADACHE [None]
  - UPPER EXTREMITY MASS [None]
